FAERS Safety Report 5664095-X (Version None)
Quarter: 2008Q1

REPORT INFORMATION
  Report Type: 
  Country: None (occurrence: None)
  Receive Date: 20080314
  Receipt Date: 20080310
  Transmission Date: 20080703
  Serious: Yes (Life-Threatening, Hospitalization)
  Sender: FDA-Public Use
  Company Number: NL-TEVA-167316ISR

PATIENT
  Age: 62 Year
  Sex: Female

DRUGS (7)
  1. VALPROIC ACID [Suspect]
     Indication: EPILEPSY
     Route: 048
  2. SOTALOL [Concomitant]
  3. BACLOFEN [Concomitant]
  4. PAROXETINE HCL [Concomitant]
  5. LACTULOSE [Concomitant]
  6. ASPIRIN [Concomitant]
  7. OMEPRAZOLE [Concomitant]

REACTIONS (4)
  - HEPATIC ENZYME INCREASED [None]
  - METABOLIC ENCEPHALOPATHY [None]
  - PNEUMONIA [None]
  - SUPRAVENTRICULAR TACHYCARDIA [None]
